FAERS Safety Report 8585505-4 (Version None)
Quarter: 2012Q3

REPORT INFORMATION
  Report Type: 
  Country: None (occurrence: None)
  Receive Date: 20120810
  Receipt Date: 20120731
  Transmission Date: 20120928
  Serious: Yes (Death, Life-Threatening, Hospitalization)
  Sender: FDA-Public Use
  Company Number: US-BAYER-2012-053209

PATIENT
  Age: 20 Year
  Sex: Female

DRUGS (3)
  1. YAZ [Suspect]
     Dosage: UNK
     Dates: start: 20100302, end: 20100513
  2. YASMIN [Suspect]
     Dosage: UNK
     Dates: start: 20100302, end: 20100513
  3. DROSPIRENONE AND ETHINYL ESTRADIOL [Suspect]
     Indication: MENSTRUATION IRREGULAR
     Dosage: UNK
     Dates: start: 20100302, end: 20100513

REACTIONS (7)
  - EMOTIONAL DISTRESS [None]
  - PAIN [None]
  - ANXIETY [None]
  - INJURY [None]
  - DEATH [None]
  - GRAND MAL CONVULSION [None]
  - GENERAL PHYSICAL HEALTH DETERIORATION [None]
